APPROVED DRUG PRODUCT: FINACEA
Active Ingredient: AZELAIC ACID
Strength: 15%
Dosage Form/Route: GEL;TOPICAL
Application: N021470 | Product #001 | TE Code: AB
Applicant: LEO PHARMA AS
Approved: Dec 24, 2002 | RLD: Yes | RS: Yes | Type: RX